FAERS Safety Report 14963397 (Version 2)
Quarter: 2018Q2

REPORT INFORMATION
  Report Type: Spontaneous
  Country: AU (occurrence: AU)
  Receive Date: 20180601
  Receipt Date: 20180608
  Transmission Date: 20180711
  Serious: Yes (Other)
  Sender: FDA-Public Use
  Company Number: AU-MYLANLABS-2018M1038086

PATIENT
  Age: 24 Year
  Sex: Male

DRUGS (13)
  1. CLOZAPINE. [Suspect]
     Active Substance: CLOZAPINE
     Dosage: 425 MG, QD
  2. VALPROIC ACID. [Interacting]
     Active Substance: VALPROIC ACID
     Dosage: 2000 MG, QD
  3. CLOZAPINE. [Suspect]
     Active Substance: CLOZAPINE
     Dosage: 650 MG, PM
  4. CLOZAPINE. [Suspect]
     Active Substance: CLOZAPINE
     Dosage: 650 MG, PM
  5. CLOZAPINE. [Suspect]
     Active Substance: CLOZAPINE
     Dosage: 50 MG, NOON
  6. VALPROIC ACID. [Interacting]
     Active Substance: VALPROIC ACID
     Indication: SCHIZOPHRENIA
     Dosage: 1000 MG, QD
  7. CLOZAPINE. [Suspect]
     Active Substance: CLOZAPINE
     Dosage: 100 MG, NOON
  8. CLOZAPINE. [Suspect]
     Active Substance: CLOZAPINE
     Dosage: 350 MG, QD
  9. CLOZAPINE. [Suspect]
     Active Substance: CLOZAPINE
     Dosage: 650 MG, PM
  10. VALPROIC ACID. [Interacting]
     Active Substance: VALPROIC ACID
     Indication: SEIZURE
     Dosage: 1500 MG, QD
  11. HALOPERIDOL. [Interacting]
     Active Substance: HALOPERIDOL
     Indication: SCHIZOPHRENIA
     Dosage: 200 MG, Q28D
  12. CLOZAPINE. [Suspect]
     Active Substance: CLOZAPINE
     Indication: SCHIZOPHRENIA
     Dosage: 50 MG, NOON
  13. CLOZAPINE. [Suspect]
     Active Substance: CLOZAPINE
     Dosage: 650 MG, QD

REACTIONS (8)
  - Drug interaction [Unknown]
  - Somnolence [Unknown]
  - Salivary hypersecretion [Unknown]
  - Antipsychotic drug level increased [Recovered/Resolved]
  - Toxicity to various agents [Unknown]
  - Generalised tonic-clonic seizure [Unknown]
  - Muscle contractions involuntary [Unknown]
  - Dysarthria [Unknown]
